FAERS Safety Report 5258677-7 (Version None)
Quarter: 2007Q1

REPORT INFORMATION
  Report Type: 
  Country: None (occurrence: None)
  Receive Date: 20070305
  Receipt Date: 20070223
  Transmission Date: 20070707
  Serious: Yes (Hospitalization)
  Sender: FDA-Public Use
  Company Number: 2006SP008804

PATIENT
  Age: 53 Year
  Sex: Male

DRUGS (2)
  1. VIRAFERONPEG [Suspect]
     Indication: MALIGNANT MELANOMA
     Dosage: 1.5 MCG/KG;QW;SC
     Route: 058
     Dates: start: 20060805, end: 20061117
  2. IDD 3 (MELANOMA VACCINE) [Suspect]
     Indication: MALIGNANT MELANOMA
     Dosage: DOSE #06 (IN SERISE); SUBCUTANEOUS
     Route: 058
     Dates: start: 20061011

REACTIONS (7)
  - ARTERIAL THROMBOSIS LIMB [None]
  - ERYTHEMA [None]
  - NECROSIS [None]
  - PAIN IN EXTREMITY [None]
  - PERIPHERAL ISCHAEMIA [None]
  - VASCULITIS [None]
  - VENOUS THROMBOSIS [None]
